FAERS Safety Report 8472139-5 (Version None)
Quarter: 2012Q2

REPORT INFORMATION
  Report Type: 
  Country: None (occurrence: None)
  Receive Date: 20120627
  Receipt Date: 20120618
  Transmission Date: 20120825
  Serious: Yes (Other)
  Sender: FDA-Public Use
  Company Number: US-ALEXION-A201201199

PATIENT
  Sex: Female
  Weight: 54.9 kg

DRUGS (3)
  1. YAZ [Concomitant]
     Indication: CONTRACEPTION
     Dosage: 1 TAB QD
     Route: 048
  2. SOLIRIS [Suspect]
     Indication: PAROXYSMAL NOCTURNAL HAEMOGLOBINURIA
     Dosage: 900 MG, Q2W
     Route: 042
     Dates: start: 20100804
  3. SOLIRIS [Suspect]
     Dosage: 600 MG, QW
     Route: 042
     Dates: start: 20100101, end: 20100101

REACTIONS (1)
  - INFUSION RELATED REACTION [None]
